FAERS Safety Report 17217248 (Version 3)
Quarter: 2020Q1

REPORT INFORMATION
  Report Type: Spontaneous
  Country: JP (occurrence: JP)
  Receive Date: 20191231
  Receipt Date: 20200318
  Transmission Date: 20200409
  Serious: Yes (Death, Other)
  Sender: FDA-Public Use
  Company Number: JP-ROCHE-2511470

PATIENT
  Age: 89 Year
  Sex: Female

DRUGS (27)
  1. ESOMEPRAZOLE. [Concomitant]
     Active Substance: ESOMEPRAZOLE MAGNESIUM
     Route: 065
     Dates: start: 20191107
  2. REBAMIPIDE [Concomitant]
     Active Substance: REBAMIPIDE
     Route: 065
     Dates: start: 20191202, end: 20191223
  3. BELSOMRA [Concomitant]
     Active Substance: SUVOREXANT
     Route: 065
     Dates: start: 20191202, end: 20191223
  4. ADENOSINE TRIPHOSPHATE [Concomitant]
     Active Substance: ADENOSINE TRIPHOSPHATE
     Route: 065
     Dates: start: 20190511, end: 20191218
  5. ASPARA POTASSIUM [Concomitant]
     Active Substance: POTASSIUM ASPARTATE
     Route: 065
     Dates: start: 20191107
  6. DENOSINE [GANCICLOVIR] [Suspect]
     Active Substance: GANCICLOVIR
     Route: 042
     Dates: start: 20191224
  7. ALFACALCIDOL [Concomitant]
     Active Substance: ALFACALCIDOL
     Route: 065
     Dates: start: 20191216, end: 20191227
  8. FUNGIZONE [Concomitant]
     Active Substance: AMPHOTERICIN B
     Route: 065
     Dates: start: 20191216, end: 20191227
  9. POTACOL R [Concomitant]
     Active Substance: CALCIUM CHLORIDE\MALTOSE\POTASSIUM CHLORIDE\SODIUM CHLORIDE\SODIUM LACTATE
     Route: 065
     Dates: start: 20191212, end: 20191212
  10. LACTEC [Concomitant]
     Active Substance: CALCIUM CHLORIDE ANHYDROUS\POTASSIUM CHLORIDE\SODIUM CHLORIDE\SODIUM LACTATE
     Route: 065
     Dates: start: 20191216, end: 20191217
  11. CEFAMEZIN ALPHA [Concomitant]
     Active Substance: CEFAZOLIN SODIUM
     Route: 065
     Dates: start: 20191015
  12. TRIAZOLAM. [Concomitant]
     Active Substance: TRIAZOLAM
  13. ATORVASTATIN CALCIUM TRIHYDRATE [Concomitant]
     Active Substance: ATORVASTATIN CALCIUM
     Route: 065
     Dates: start: 20191105, end: 20191218
  14. FUROSEMIDE. [Concomitant]
     Active Substance: FUROSEMIDE
     Route: 065
     Dates: start: 20191107
  15. GLUCOSE [Concomitant]
     Active Substance: DEXTROSE
     Route: 065
     Dates: start: 20191107, end: 20191107
  16. TRANEXAMIC ACID. [Concomitant]
     Active Substance: TRANEXAMIC ACID
  17. HAEMOLEX [Concomitant]
     Route: 065
     Dates: start: 20191217, end: 20191225
  18. PENTASA [Concomitant]
     Active Substance: MESALAMINE
     Route: 065
     Dates: start: 20191107
  19. PREDNISOLONE. [Concomitant]
     Active Substance: PREDNISOLONE
     Route: 065
     Dates: start: 20191107
  20. TERIBONE [Concomitant]
     Active Substance: TERIPARATIDE ACETATE
     Route: 065
     Dates: start: 20191202, end: 20191223
  21. BETAHISTINE MESILATE [Concomitant]
     Active Substance: BETAHISTINE MESILATE
     Route: 065
     Dates: start: 20191105, end: 20191218
  22. ISOSORBIDE DINITRATE. [Concomitant]
     Active Substance: ISOSORBIDE DINITRATE
     Route: 065
     Dates: start: 20191107, end: 20191107
  23. ITOROL [Concomitant]
     Active Substance: ISOSORBIDE MONONITRATE
     Route: 065
     Dates: start: 20191107
  24. DENOSINE [GANCICLOVIR] [Suspect]
     Active Substance: GANCICLOVIR
     Indication: CYTOMEGALOVIRUS ENTEROCOLITIS
     Route: 042
     Dates: start: 20191213, end: 20191219
  25. DENOSINE [GANCICLOVIR] [Suspect]
     Active Substance: GANCICLOVIR
     Route: 042
     Dates: start: 20191221, end: 20191223
  26. CARBAZOCHROME SULFONATE NA [Concomitant]
     Route: 065
     Dates: start: 20191216, end: 20191217
  27. NICORANDIL [Concomitant]
     Active Substance: NICORANDIL
     Route: 065
     Dates: start: 20191107

REACTIONS (2)
  - Neuropsychiatric symptoms [Fatal]
  - Hallucination [Not Recovered/Not Resolved]

NARRATIVE: CASE EVENT DATE: 20191218
